FAERS Safety Report 8248358-X (Version None)
Quarter: 2012Q1

REPORT INFORMATION
  Report Type: 
  Country: None (occurrence: None)
  Receive Date: 20120330
  Receipt Date: 20120323
  Transmission Date: 20120608
  Serious: Yes (Other)
  Sender: FDA-Public Use
  Company Number: GB-ABBOTT-12P-167-0918245-00

PATIENT
  Sex: Female

DRUGS (1)
  1. HUMIRA [Suspect]
     Indication: ANKYLOSING SPONDYLITIS
     Route: 058
     Dates: start: 20120305

REACTIONS (5)
  - LIP DRY [None]
  - RASH PRURITIC [None]
  - RASH PUSTULAR [None]
  - LIP PAIN [None]
  - CHAPPED LIPS [None]
